FAERS Safety Report 4456227-6 (Version None)
Quarter: 2004Q3

REPORT INFORMATION
  Report Type: 
  Country: None (occurrence: None)
  Receive Date: 20040920
  Receipt Date: 20040310
  Transmission Date: 20050211
  Serious: Yes (Hospitalization)
  Sender: FDA-Public Use
  Company Number: 04GER0095

PATIENT
  Sex: Male

DRUGS (6)
  1. AGGRASTAT [Suspect]
     Dates: start: 20040307, end: 20040308
  2. AGGRASTAT [Suspect]
  3. INJECTION TIROFIBAN HCL [Suspect]
     Dosage: INTRAVENOUS
     Route: 042
     Dates: start: 20040307, end: 20040308
  4. ASPIRIN [Concomitant]
  5. CLOPIDOGREL BISULFATE [Concomitant]
  6. HEPARIN [Concomitant]

REACTIONS (2)
  - ACTIVATED PARTIAL THROMBOPLASTIN TIME PROLONGED [None]
  - HAEMORRHAGE [None]
